FAERS Safety Report 11358622 (Version 1)
Quarter: 2015Q3

REPORT INFORMATION
  Report Type: Spontaneous
  Country: US (occurrence: US)
  Receive Date: 20150803
  Receipt Date: 20150803
  Transmission Date: 20151125
  Serious: Yes (Other)
  Sender: FDA-Public Use
  Company Number: US-ELI_LILLY_AND_COMPANY-US200911007198

PATIENT
  Age: 34 Year
  Sex: Female

DRUGS (4)
  1. GEODON [Concomitant]
     Active Substance: ZIPRASIDONE HYDROCHLORIDE\ZIPRASIDONE MESYLATE
     Indication: BIPOLAR DISORDER
     Dosage: 160 MG, UNK
     Dates: start: 20090329
  2. LEXAPRO [Concomitant]
     Active Substance: ESCITALOPRAM OXALATE
     Dosage: 10 MG, DAILY (1/D)
  3. GEODON [Concomitant]
     Active Substance: ZIPRASIDONE HYDROCHLORIDE\ZIPRASIDONE MESYLATE
     Dosage: 20 MG, DAILY (1/D)
     Dates: start: 20090329
  4. ZYPREXA ZYDIS [Suspect]
     Active Substance: OLANZAPINE
     Indication: POST-TRAUMATIC STRESS DISORDER
     Dosage: 5 MG, UNK
     Dates: start: 20090624, end: 20091009

REACTIONS (2)
  - Seizure [Recovered/Resolved]
  - Off label use [Recovered/Resolved]

NARRATIVE: CASE EVENT DATE: 20090624
